FAERS Safety Report 15080492 (Version 1)
Quarter: 2018Q2

REPORT INFORMATION
  Report Type: Report from Study
  Country: None (occurrence: TH)
  Receive Date: 20180628
  Receipt Date: 20180628
  Transmission Date: 20180711
  Serious: Yes (Other)
  Sender: FDA-Public Use
  Company Number: TH-ABBVIE-18S-155-2401294-00

PATIENT
  Age: 30 Year
  Sex: Female

DRUGS (3)
  1. DARUNAVIR [Suspect]
     Active Substance: DARUNAVIR
     Indication: ANTIRETROVIRAL THERAPY
     Dosage: TRIMESTER OF EXPOSURE 1-3 TRIMESTER
     Route: 048
  2. RALTEGRAVIR. [Suspect]
     Active Substance: RALTEGRAVIR
     Indication: ANTIRETROVIRAL THERAPY
     Dosage: TRIMESTER OF EXPOSURE 1-3 TRIMESTER
     Route: 048
  3. NORVIR [Suspect]
     Active Substance: RITONAVIR
     Indication: ANTIRETROVIRAL THERAPY
     Dosage: TRIMESTER OF EXPOSURE 1-3 TRIMESTER
     Route: 048

REACTIONS (2)
  - Abortion [Unknown]
  - Exposure during pregnancy [Unknown]
